FAERS Safety Report 9730134 (Version 1)
Quarter: 2013Q4

REPORT INFORMATION
  Report Type: Spontaneous
  Country: US (occurrence: CA)
  Receive Date: 20131204
  Receipt Date: 20131204
  Transmission Date: 20140711
  Serious: Yes (Hospitalization)
  Sender: FDA-Public Use
  Company Number: CA-FRI-1000051848

PATIENT
  Age: 74 Year
  Sex: Male

DRUGS (5)
  1. ROFLUMILAST [Suspect]
     Indication: CHRONIC OBSTRUCTIVE PULMONARY DISEASE
  2. ROFLUMILAST [Suspect]
  3. ROFLUMILAST [Suspect]
  4. ADVAIR [Suspect]
  5. SPIRIVA [Suspect]

REACTIONS (3)
  - Chronic obstructive pulmonary disease [Unknown]
  - Cough [Recovering/Resolving]
  - Weight decreased [Recovering/Resolving]
